FAERS Safety Report 8811131 (Version 1)
Quarter: 2012Q4

REPORT INFORMATION
  Report Type: 
  Country: FR (occurrence: FR)
  Receive Date: 20120927
  Receipt Date: 20120927
  Transmission Date: 20130627
  Serious: Yes (Death, Other)
  Sender: FDA-Public Use
  Company Number: PHHY2012FR083190

PATIENT
  Age: 61 Year
  Sex: Female

DRUGS (2)
  1. CICLOSPORIN [Suspect]
     Indication: STEM CELL TRANSPLANT
     Dosage: UNK
  2. RITUXIMAB [Suspect]

REACTIONS (17)
  - Acute respiratory distress syndrome [Fatal]
  - Coma [Fatal]
  - BK virus infection [Unknown]
  - Metabolic acidosis [Unknown]
  - Renal failure [Fatal]
  - Epstein-Barr viraemia [Recovered/Resolved]
  - Encephalitis [Recovered/Resolved]
  - Pyrexia [Recovered/Resolved]
  - General physical health deterioration [Recovered/Resolved]
  - Somnolence [Recovered/Resolved]
  - Disorientation [Recovered/Resolved]
  - Confusional state [Recovered/Resolved]
  - Hepatitis viral [Recovered/Resolved]
  - Pleocytosis [Recovered/Resolved]
  - CSF glucose decreased [Recovered/Resolved]
  - Hypoalbuminaemia [Recovered/Resolved]
  - Blood bilirubin increased [Recovered/Resolved]
